FAERS Safety Report 5614851-9 (Version None)
Quarter: 2008Q1

REPORT INFORMATION
  Report Type: 
  Country: None (occurrence: None)
  Receive Date: 20080131
  Receipt Date: 20080116
  Transmission Date: 20080703
  Serious: Yes (Other)
  Sender: FDA-Public Use
  Company Number: ENT 2007-0161

PATIENT
  Age: 71 Year
  Sex: Female

DRUGS (9)
  1. COMTAN [Suspect]
     Indication: PARKINSON'S DISEASE
     Dosage: 500 MG (100 MG, 5 IN 1 D) ORAL, QID, ORAL
     Route: 048
     Dates: start: 20070530, end: 20070613
  2. COMTAN [Suspect]
     Indication: PARKINSON'S DISEASE
     Dosage: 500 MG (100 MG, 5 IN 1 D) ORAL, QID, ORAL
     Route: 048
     Dates: start: 20070630
  3. SYMMETREL [Suspect]
     Indication: PARKINSON'S DISEASE
     Dosage: 5 DF ORAL
     Route: 048
     Dates: start: 20070120
  4. CARBIDOPA AND LEVODOPA [Suspect]
     Dosage: 1 DF, 5 QD, ORAL
     Route: 048
     Dates: start: 19991102
  5. PERMAX [Suspect]
     Indication: PARKINSON'S DISEASE
     Dosage: 0.75 MG (0.25 MG, 3 IN 1 D) ORAL
     Route: 048
     Dates: start: 20061220
  6. ONEALFA [Concomitant]
  7. DIAZEPAM [Concomitant]
  8. ROHYPNOL [Concomitant]
  9. KETOPROFEN [Concomitant]

REACTIONS (3)
  - DYSKINESIA [None]
  - HALLUCINATION, VISUAL [None]
  - VISUAL DISTURBANCE [None]
